FAERS Safety Report 9289859 (Version 3)
Quarter: 2013Q4

REPORT INFORMATION
  Report Type: Spontaneous
  Country: JP (occurrence: JP)
  Receive Date: 20130515
  Receipt Date: 20131226
  Transmission Date: 20140711
  Serious: Yes (Death, Other)
  Sender: FDA-Public Use
  Company Number: PHHY2012JP108536

PATIENT
  Age: 64 Year
  Sex: Male
  Weight: 54 kg

DRUGS (14)
  1. CERTICAN [Suspect]
     Indication: RENAL TRANSPLANT
     Dosage: 1.5 MG
     Route: 048
     Dates: start: 20120522, end: 20120611
  2. CERTICAN [Suspect]
     Dosage: 1 MG
     Route: 048
     Dates: start: 20120612, end: 20120704
  3. MEDROL [Concomitant]
     Indication: RENAL TRANSPLANT
     Dosage: 2 MG
     Route: 048
  4. MEDROL [Concomitant]
     Dosage: 2 MG
     Route: 048
     Dates: end: 20120704
  5. CELLCEPT [Concomitant]
     Indication: RENAL TRANSPLANT
     Dosage: 1000 MG
     Route: 048
  6. CELLCEPT [Concomitant]
     Dosage: 1000 MG
     Route: 048
  7. CELLCEPT [Concomitant]
     Dosage: 500 MG
     Route: 048
     Dates: end: 20120704
  8. AMLODIPINE [Concomitant]
     Indication: HYPERTENSION
     Dosage: 5 MG
     Route: 048
  9. ALLOPURINOL [Concomitant]
     Indication: HYPERURICAEMIA
     Dosage: 100 MG
     Route: 048
  10. DIOVAN [Concomitant]
     Indication: HYPERTENSION
     Dosage: 160 MG
     Route: 048
  11. PARIET [Concomitant]
     Indication: GASTROOESOPHAGEAL REFLUX DISEASE
     Dosage: 10 MG
     Route: 048
  12. FERROMIA [Concomitant]
     Indication: IRON DEFICIENCY ANAEMIA
     Dosage: 100 MG
     Route: 048
  13. BASILIXIMAB [Concomitant]
     Indication: RENAL TRANSPLANT
     Dosage: UNK
  14. TACROLIMUS [Concomitant]
     Indication: RENAL TRANSPLANT

REACTIONS (8)
  - Epstein-Barr virus associated lymphoma [Fatal]
  - Pyrexia [Fatal]
  - Malaise [Fatal]
  - Decreased appetite [Fatal]
  - Neurological symptom [Unknown]
  - Psychiatric symptom [Unknown]
  - Convulsion [Unknown]
  - Loss of consciousness [Unknown]
